FAERS Safety Report 6933575-9 (Version None)
Quarter: 2010Q3

REPORT INFORMATION
  Report Type: 
  Country: None (occurrence: None)
  Receive Date: 20100820
  Receipt Date: 20100809
  Transmission Date: 20110219
  Serious: Yes (Other)
  Sender: FDA-Public Use
  Company Number: JP-PFIZER INC-2010085597

PATIENT
  Age: 80 Year
  Sex: Male

DRUGS (4)
  1. LYRICA [Suspect]
     Indication: TRIGEMINAL NEURALGIA
     Dosage: 75 MG, 2X/DAY
     Route: 048
     Dates: start: 20100624, end: 20100714
  2. TOFRANIL [Concomitant]
     Indication: POST HERPETIC NEURALGIA
     Dosage: 50 MG A DAY
     Route: 048
     Dates: start: 20100521, end: 20100623
  3. LOXONIN [Concomitant]
     Indication: POST HERPETIC NEURALGIA
     Dosage: 120 MG A DAY
     Route: 048
     Dates: start: 20100521
  4. GASTER [Concomitant]
     Indication: GASTRITIS
     Dosage: 20 MG A DAY
     Dates: start: 20100521

REACTIONS (2)
  - ABDOMINAL PAIN [None]
  - LIVER FUNCTION TEST ABNORMAL [None]
